FAERS Safety Report 9299109 (Version 1)
Quarter: 2013Q2

REPORT INFORMATION
  Report Type: Spontaneous
  Country: FR (occurrence: FR)
  Receive Date: 20130520
  Receipt Date: 20130520
  Transmission Date: 20140414
  Serious: Yes (Hospitalization)
  Sender: FDA-Public Use
  Company Number: FR-MYLANLABS-2013S1009961

PATIENT
  Sex: Male

DRUGS (1)
  1. ETOPOSIDE [Suspect]
     Indication: CHEMOTHERAPY
     Route: 041

REACTIONS (1)
  - Back pain [Unknown]
